FAERS Safety Report 9373807 (Version 1)
Quarter: 2013Q2

REPORT INFORMATION
  Report Type: Spontaneous
  Country: DE (occurrence: DE)
  Receive Date: 20130628
  Receipt Date: 20130628
  Transmission Date: 20140414
  Serious: Yes (Other)
  Sender: FDA-Public Use
  Company Number: DE-AMGEN-DEUSP2013045247

PATIENT
  Age: 62 Year
  Sex: Female

DRUGS (4)
  1. ENBREL [Suspect]
     Indication: ANKYLOSING SPONDYLITIS
     Dosage: 50 MG, WEEKLY
     Route: 065
     Dates: start: 20130408, end: 20130507
  2. PREDNISOLON                        /00016201/ [Concomitant]
     Dosage: 6 MG, UNK
  3. OMEPRAZOL                          /00661201/ [Concomitant]
     Dosage: UNK
  4. EUTHYROX [Concomitant]
     Dosage: 100 MG FOR 4 DAYS AND 112 MG FOR 3 DAYS

REACTIONS (2)
  - Vaginal disorder [Recovered/Resolved]
  - Tooth disorder [Recovered/Resolved]
